FAERS Safety Report 4733170-6 (Version None)
Quarter: 2005Q3

REPORT INFORMATION
  Report Type: 
  Country: None (occurrence: None)
  Receive Date: 20050802
  Receipt Date: 20050719
  Transmission Date: 20060218
  Serious: Yes (Death)
  Sender: FDA-Public Use
  Company Number: 2005-DE-02831GD

PATIENT
  Age: 81 Year
  Sex: Male

DRUGS (3)
  1. CALCIUM CARBONATE (CALCIUM CARBONATE) [Suspect]
  2. FUROSEMIDE [Suspect]
  3. DOXAZOSIN (DOXAZOSIN) [Suspect]

REACTIONS (6)
  - BLOOD BICARBONATE DECREASED [None]
  - CARDIO-RESPIRATORY ARREST [None]
  - EYE DISORDER [None]
  - HEART RATE INCREASED [None]
  - ORAL MUCOSAL DISORDER [None]
  - TOXIC EPIDERMAL NECROLYSIS [None]
